FAERS Safety Report 24304395 (Version 2)
Quarter: 2024Q3

REPORT INFORMATION
  Report Type: Other
  Country: CN (occurrence: CN)
  Receive Date: 20240910
  Receipt Date: 20240919
  Transmission Date: 20241016
  Serious: Yes (Life-Threatening)
  Sender: B BRAUN
  Company Number: CN-B.Braun Medical Inc.-2161448

PATIENT
  Age: 53 Year
  Sex: Male

DRUGS (18)
  1. DEXTROSE [Suspect]
     Active Substance: DEXTROSE\DEXTROSE MONOHYDRATE
     Indication: Hypoglycaemia
  2. UNSPECIFIED INGREDIENT [Suspect]
     Active Substance: UNSPECIFIED INGREDIENT
  3. DOPAMINE HYDROCHLORIDE [Concomitant]
     Active Substance: DOPAMINE HYDROCHLORIDE
  4. NIKETHAMIDE [Concomitant]
     Active Substance: NIKETHAMIDE
  5. ATROPINE SULFATE [Concomitant]
     Active Substance: ATROPINE SULFATE
  6. EPINEPHRINE HYDROCHLORIDE [Concomitant]
     Active Substance: EPINEPHRINE HYDROCHLORIDE
  7. CALCIUM [Concomitant]
     Active Substance: CALCIUM
  8. MAGNESIUM [Concomitant]
     Active Substance: MAGNESIUM
  9. POTASSIUM [Concomitant]
     Active Substance: POTASSIUM
  10. SODIUM [Concomitant]
     Active Substance: SODIUM
  11. Multiple trace ?elements injection 4 ml in 5% glucose injection [Concomitant]
  12. Drotaverine injection 80 mg in 5% glucose injection [Concomitant]
  13. 0.9% sodium chloride ?injection [Concomitant]
  14. RABEPRAZOLE SODIUM [Concomitant]
     Active Substance: RABEPRAZOLE SODIUM
  15. METHYLPREDNISOLONE SODIUM SUCCINATE [Suspect]
     Active Substance: METHYLPREDNISOLONE SODIUM SUCCINATE
  16. DEXAMETHASONE SODIUM PHOSPHATE [Suspect]
     Active Substance: DEXAMETHASONE PHOSPHATE\DEXAMETHASONE SODIUM PHOSPHATE
  17. LIDOCAINE [Concomitant]
     Active Substance: LIDOCAINE
  18. DICLOFENAC SODIUM [Concomitant]
     Active Substance: DICLOFENAC\DICLOFENAC SODIUM

REACTIONS (1)
  - Drug ineffective [Unknown]
